FAERS Safety Report 10120038 (Version 2)
Quarter: 2014Q2

REPORT INFORMATION
  Report Type: Spontaneous
  Country: US (occurrence: US)
  Receive Date: 20140425
  Receipt Date: 20140611
  Transmission Date: 20141212
  Serious: No
  Sender: FDA-Public Use
  Company Number: US-PFIZER INC-2014111613

PATIENT
  Sex: Male

DRUGS (6)
  1. ZOLOFT [Suspect]
     Indication: MAJOR DEPRESSION
     Dosage: 100 MG, UNK
  2. ZOLOFT [Suspect]
     Indication: GENERALISED ANXIETY DISORDER
  3. ZOLOFT [Suspect]
     Indication: POST-TRAUMATIC STRESS DISORDER
  4. BUSPAR [Suspect]
     Indication: MAJOR DEPRESSION
     Dosage: 60 MG, DAILY
  5. BUSPAR [Suspect]
     Indication: GENERALISED ANXIETY DISORDER
     Dosage: 20 MG, 3X/DAY
  6. WELLBUTRIN [Concomitant]

REACTIONS (5)
  - Erectile dysfunction [Unknown]
  - Anorgasmia [Unknown]
  - Ejaculation failure [Unknown]
  - Testicular pain [Unknown]
  - Retrograde ejaculation [Unknown]
